FAERS Safety Report 4638133-7 (Version None)
Quarter: 2005Q2

REPORT INFORMATION
  Report Type: 
  Country: None (occurrence: None)
  Receive Date: 20050418
  Receipt Date: 20050413
  Transmission Date: 20051028
  Serious: Yes (Other)
  Sender: FDA-Public Use
  Company Number: PHEH2005US04313

PATIENT
  Age: 59 Year
  Sex: Female

DRUGS (2)
  1. ATENOLOL [Concomitant]
  2. LAMISIL [Suspect]
     Indication: NAIL TINEA
     Dosage: 250 MG, QD
     Route: 048
     Dates: start: 20050216

REACTIONS (2)
  - MACULOPATHY [None]
  - VISUAL DISTURBANCE [None]
